FAERS Safety Report 6960840-1 (Version None)
Quarter: 2010Q3

REPORT INFORMATION
  Report Type: 
  Country: None (occurrence: None)
  Receive Date: 20100830
  Receipt Date: 20100813
  Transmission Date: 20110219
  Serious: Yes (Death)
  Sender: FDA-Public Use
  Company Number: AE 2010-206

PATIENT
  Sex: Female

DRUGS (21)
  1. FAZACLO ODT [Suspect]
     Dosage: 400 MG DAILY PO
     Route: 048
     Dates: start: 20081208, end: 20100713
  2. GLIPIZIDE [Concomitant]
  3. DOCUSATE SODIUM [Concomitant]
  4. FIBERCON [Concomitant]
  5. REQUIP [Concomitant]
  6. PREMARIN [Concomitant]
  7. SELENIUM [Concomitant]
  8. CRESTOR [Concomitant]
  9. PRILOSEC [Concomitant]
  10. URECHOLINE [Concomitant]
  11. PROSCAR [Concomitant]
  12. SPIRONOLACTONE [Concomitant]
  13. ALBUTEROL SULATE [Concomitant]
  14. NAPROXEN [Concomitant]
  15. POTASSIUM [Concomitant]
  16. LORAZEPAM [Concomitant]
  17. TRICOR [Concomitant]
  18. AMANTADINE [Concomitant]
  19. LITHIUM [Concomitant]
  20. LASIX [Concomitant]
  21. METFORMIN [Concomitant]

REACTIONS (1)
  - CARDIAC FAILURE [None]
